FAERS Safety Report 21962173 (Version 1)
Quarter: 2023Q1

REPORT INFORMATION
  Report Type: Spontaneous
  Country: CL (occurrence: CL)
  Receive Date: 20230207
  Receipt Date: 20230207
  Transmission Date: 20230418
  Serious: Yes (Death, Hospitalization)
  Sender: FDA-Public Use
  Company Number: CL-PFIZER INC-PV202300017267

PATIENT
  Age: 83 Year
  Sex: Male
  Weight: 70 kg

DRUGS (4)
  1. SUTENT [Suspect]
     Active Substance: SUNITINIB MALATE
     Indication: Renal cancer
     Dosage: 14 DAYS ON AND 14 DAYS OFF
     Dates: start: 201809
  2. SUTENT [Suspect]
     Active Substance: SUNITINIB MALATE
     Dosage: 14 DAYS ON AND 21 DAYS OFF
  3. AMLODIPINE [Concomitant]
     Active Substance: AMLODIPINE BESYLATE
     Indication: Hypertension
  4. PREDNISONE [Concomitant]
     Active Substance: PREDNISONE
     Indication: Bradycardia

REACTIONS (7)
  - Acute myocardial infarction [Fatal]
  - Bradycardia [Unknown]
  - Stomatitis [Unknown]
  - Dyschezia [Unknown]
  - Mucosal disorder [Unknown]
  - Neoplasm progression [Unknown]
  - Off label use [Unknown]

NARRATIVE: CASE EVENT DATE: 20180901
